FAERS Safety Report 8900780 (Version 1)
Quarter: 2012Q4

REPORT INFORMATION
  Report Type: 
  Country: US (occurrence: US)
  Receive Date: 20121109
  Receipt Date: 20121109
  Transmission Date: 20130627
  Serious: Yes (Other)
  Sender: FDA-Public Use
  Company Number: US-ASTELLAS-2012US010800

PATIENT
  Age: 62 Year
  Sex: Female
  Weight: 92 kg

DRUGS (7)
  1. VESICARE [Suspect]
     Indication: HYPERTONIC BLADDER
     Dosage: 5 mg, UID/QD
     Route: 048
     Dates: start: 20101101
  2. COPAXONE [Concomitant]
     Indication: MULTIPLE SCLEROSIS
     Dosage: 20 mg, nightly
     Route: 058
  3. BACLOFEN [Concomitant]
     Indication: MUSCLE SPASTICITY
     Dosage: 10 mg, prn
     Route: 048
     Dates: start: 20041201
  4. BACLOFEN [Concomitant]
     Indication: MULTIPLE SCLEROSIS
  5. VITAMIN D3 [Concomitant]
     Indication: SUPPLEMENTATION THERAPY
     Dosage: 2000 IU, UID/QD
     Route: 048
     Dates: start: 20120101
  6. CITALOPRAM [Concomitant]
     Indication: DEPRESSION
     Dosage: 40 mg, UID/QD
     Route: 048
     Dates: start: 20120401
  7. VITAMIN B12                        /00056201/ [Concomitant]
     Indication: SUPPLEMENTATION THERAPY
     Dosage: 250 ug, UID/QD
     Route: 048
     Dates: start: 20120101

REACTIONS (1)
  - Viral infection [Not Recovered/Not Resolved]
